FAERS Safety Report 6849969-6 (Version None)
Quarter: 2010Q3

REPORT INFORMATION
  Report Type: 
  Country: None (occurrence: None)
  Receive Date: 20100716
  Receipt Date: 20071013
  Transmission Date: 20110219
  Serious: No
  Sender: FDA-Public Use
  Company Number: US-PFIZER INC-2007085833

PATIENT
  Sex: Female
  Weight: 79.5 kg

DRUGS (11)
  1. CHANTIX [Suspect]
     Indication: SMOKING CESSATION THERAPY
     Dates: start: 20070901
  2. VOLTAREN [Concomitant]
  3. FENTANYL [Concomitant]
  4. OXYCODONE HCL [Concomitant]
  5. ADVAIR DISKUS 100/50 [Concomitant]
  6. ALBUTEROL [Concomitant]
  7. MISOPROSTOL [Concomitant]
  8. ALL OTHER THERAPEUTIC PRODUCTS [Concomitant]
  9. PREDNISOLONE [Concomitant]
  10. TYLENOL [Concomitant]
  11. ADVIL LIQUI-GELS [Concomitant]

REACTIONS (2)
  - DIZZINESS [None]
  - NAUSEA [None]
